FAERS Safety Report 25853159 (Version 3)
Quarter: 2025Q4

REPORT INFORMATION
  Report Type: Spontaneous
  Country: MX (occurrence: MX)
  Receive Date: 20250926
  Receipt Date: 20251029
  Transmission Date: 20260118
  Serious: Yes (Other)
  Sender: SANDOZ
  Company Number: MX-002147023-NVSC2025MX149652

PATIENT
  Age: 81 Year
  Sex: Male

DRUGS (9)
  1. EXELON [Suspect]
     Active Substance: RIVASTIGMINE TARTRATE
     Indication: Product used for unknown indication
     Dosage: 18 MG, QD (10 PATCH)
     Route: 062
     Dates: start: 2023
  2. EXELON [Suspect]
     Active Substance: RIVASTIGMINE TARTRATE
     Dosage: 18 MG, QD (10 PATCH)
     Route: 062
     Dates: start: 20240611
  3. EXELON [Suspect]
     Active Substance: RIVASTIGMINE TARTRATE
     Dosage: 27 MG, QD (15 PATCH)
     Route: 062
     Dates: start: 202508
  4. EXELON [Suspect]
     Active Substance: RIVASTIGMINE TARTRATE
     Dosage: 27 MG, QD (15 PATCH) AT NIGHT
     Route: 062
     Dates: start: 202509
  5. DUTASTERIDE\TAMSULOSIN [Concomitant]
     Active Substance: DUTASTERIDE\TAMSULOSIN
     Indication: Product used for unknown indication
     Dosage: UNK
     Route: 065
     Dates: start: 2015
  6. APIXABAN [Concomitant]
     Active Substance: APIXABAN
     Indication: Product used for unknown indication
     Dosage: UNK
     Route: 065
     Dates: start: 2017
  7. ENALAPRIL [Concomitant]
     Active Substance: ENALAPRIL
     Indication: Product used for unknown indication
     Dosage: UNK
     Route: 065
     Dates: start: 2015
  8. Renacenz [Concomitant]
     Indication: Product used for unknown indication
     Dosage: UNK
     Route: 065
     Dates: start: 2020
  9. SEROQUEL XR [Concomitant]
     Active Substance: QUETIAPINE FUMARATE
     Indication: Product used for unknown indication
     Dosage: UNK
     Route: 065
     Dates: start: 2017

REACTIONS (8)
  - Crying [Recovered/Resolved]
  - Dementia [Unknown]
  - Emotional disorder [Unknown]
  - Pain [Recovering/Resolving]
  - Memory impairment [Recovering/Resolving]
  - Abdominal pain [Recovering/Resolving]
  - Malaise [Unknown]
  - Product dose omission issue [Unknown]

NARRATIVE: CASE EVENT DATE: 20250801
